FAERS Safety Report 10049551 (Version 1)
Quarter: 2014Q1

REPORT INFORMATION
  Report Type: Spontaneous
  Country: US (occurrence: None)
  Receive Date: 20140331
  Receipt Date: 20140331
  Transmission Date: 20141002
  Serious: Yes (Other)
  Sender: FDA-Public Use
  Company Number: None

PATIENT
  Age: 52 Year
  Sex: 0
  Weight: 85.73 kg

DRUGS (4)
  1. GEODON [Suspect]
     Indication: AUTISM
     Dosage: T CUP PO BID
     Route: 048
     Dates: start: 20140220, end: 20140317
  2. GEODON [Suspect]
     Indication: BIPOLAR DISORDER
     Dosage: T CUP PO BID
     Route: 048
     Dates: start: 20140220, end: 20140317
  3. GEODON [Suspect]
     Indication: AGGRESSION
     Dosage: T CUP PO BID
     Route: 048
     Dates: start: 20140220, end: 20140317
  4. PROZAC [Concomitant]

REACTIONS (5)
  - Aggression [None]
  - Drug ineffective [None]
  - Anger [None]
  - Intentional self-injury [None]
  - Product substitution issue [None]
